FAERS Safety Report 4362963-2 (Version None)
Quarter: 2004Q2

REPORT INFORMATION
  Report Type: 
  Country: None (occurrence: None)
  Receive Date: 20040518
  Receipt Date: 20040506
  Transmission Date: 20050107
  Serious: Yes (Hospitalization)
  Sender: FDA-Public Use
  Company Number: 2004014040

PATIENT
  Age: 46 Year
  Sex: Male

DRUGS (10)
  1. LIPITOR [Suspect]
     Indication: DYSLIPIDAEMIA
     Dosage: 10 MG (10 MG, 1 IN 1 D), ORAL
     Route: 048
     Dates: start: 20031201, end: 20040201
  2. BROMAZEPAM (BROMAZEPAM) [Concomitant]
  3. CHLORTALIDONE (CHLOTALIDONE) [Concomitant]
  4. ENALAPRIL MALEATE [Concomitant]
  5. TIZANIDINE (TIZANIDINE) [Concomitant]
  6. CILOSTAZOL [Concomitant]
  7. RAMIPRIL [Concomitant]
  8. FUROSEMIDE [Concomitant]
  9. SPIRONOLACTONE [Concomitant]
  10. ACETYLSALICYLIC ACID SRT [Concomitant]

REACTIONS (5)
  - CARDIAC FAILURE [None]
  - CHILLS [None]
  - MALAISE [None]
  - NIGHT SWEATS [None]
  - NOCTURNAL DYSPNOEA [None]
